FAERS Safety Report 6272290-4 (Version None)
Quarter: 2009Q3

REPORT INFORMATION
  Report Type: 
  Country: None (occurrence: None)
  Receive Date: 20090717
  Receipt Date: 20090709
  Transmission Date: 20100115
  Serious: Yes (Hospitalization, Other)
  Sender: FDA-Public Use
  Company Number: MX-ELI_LILLY_AND_COMPANY-MX200907002257

PATIENT
  Age: 48 Year
  Sex: Female
  Weight: 51 kg

DRUGS (6)
  1. HUMALOG [Suspect]
     Indication: TYPE 2 DIABETES MELLITUS
     Dosage: 22 IU, DAILY (1/D)
     Route: 058
     Dates: start: 20060101
  2. LANTUS [Concomitant]
     Indication: DIABETES MELLITUS
     Dosage: 12 IU, DAILY (1/D)
     Route: 065
  3. MESALAZINE [Concomitant]
     Indication: LARGE INTESTINAL ULCER
     Dosage: UNK, DAILY (1/D)
     Route: 065
  4. CREON [Concomitant]
     Indication: LARGE INTESTINAL ULCER
     Dosage: UNK, DAILY (1/D)
     Route: 065
  5. ESOMEPRAZOLE MAGNESIUM [Concomitant]
     Dosage: 40 MG, DAILY (1/D)
     Route: 065
  6. MEBEVERINE [Concomitant]
     Dosage: UNK, 2/D
     Route: 065

REACTIONS (4)
  - BLOOD GLUCOSE DECREASED [None]
  - DIARRHOEA [None]
  - GALLBLADDER OPERATION [None]
  - INJECTION SITE PAIN [None]
